FAERS Safety Report 23987330 (Version 5)
Quarter: 2024Q3

REPORT INFORMATION
  Report Type: Spontaneous
  Country: US (occurrence: US)
  Receive Date: 20240618
  Receipt Date: 20240724
  Transmission Date: 20241017
  Serious: Yes (Death, Life-Threatening, Other)
  Sender: PFIZER
  Company Number: US-PFIZER INC-PV202400078403

PATIENT
  Age: 69 Year
  Sex: Female
  Weight: 170 kg

DRUGS (13)
  1. VANCOMYCIN HYDROCHLORIDE [Suspect]
     Active Substance: VANCOMYCIN HYDROCHLORIDE
     Indication: Pseudomonas infection
     Dosage: 2000MG IV (LOADING DOSE)
     Route: 042
  2. VANCOMYCIN HYDROCHLORIDE [Suspect]
     Active Substance: VANCOMYCIN HYDROCHLORIDE
     Indication: Sepsis
     Dosage: 1500MG IV Q24 HOURS
     Route: 042
  3. VANCOMYCIN HYDROCHLORIDE [Suspect]
     Active Substance: VANCOMYCIN HYDROCHLORIDE
     Dosage: DOSES WERE ADJUSTED AS PER THE BAYESIAN DOSING SOFTWARE
     Route: 042
  4. AZTREONAM [Suspect]
     Active Substance: AZTREONAM
     Indication: Pseudomonas infection
     Dosage: UNK
     Route: 042
  5. AZTREONAM [Suspect]
     Active Substance: AZTREONAM
     Indication: Sepsis
  6. METRONIDAZOLE [Suspect]
     Active Substance: METRONIDAZOLE
     Indication: Pseudomonas infection
     Dosage: UNK
  7. DOXYCYCLINE HYCLATE [Suspect]
     Active Substance: DOXYCYCLINE HYCLATE
     Indication: Pseudomonas infection
     Dosage: UNK
  8. DOXYCYCLINE HYCLATE [Suspect]
     Active Substance: DOXYCYCLINE HYCLATE
     Indication: Sepsis
  9. TOBRAMYCIN [Suspect]
     Active Substance: TOBRAMYCIN\TOBRAMYCIN SULFATE
     Indication: Pseudomonas infection
     Dosage: INHALED
     Route: 055
  10. MEROPENEM [Suspect]
     Active Substance: MEROPENEM
     Indication: Pneumonia
     Dosage: UNK
  11. LINEZOLID [Suspect]
     Active Substance: LINEZOLID
     Indication: Staphylococcal infection
     Dosage: UNK
  12. MICAFUNGIN [Suspect]
     Active Substance: MICAFUNGIN SODIUM
     Indication: Pseudomonas infection
     Dosage: UNK
     Route: 042
  13. CEFTRIAXONE [Suspect]
     Active Substance: CEFTRIAXONE\CEFTRIAXONE SODIUM
     Indication: Pseudomonas infection
     Dosage: UNK
     Route: 042

REACTIONS (2)
  - Treatment failure [Fatal]
  - Off label use [Unknown]
